FAERS Safety Report 14077156 (Version 1)
Quarter: 2017Q4

REPORT INFORMATION
  Report Type: Spontaneous
  Country: IN (occurrence: IN)
  Receive Date: 20171012
  Receipt Date: 20171012
  Transmission Date: 20180321
  Serious: Yes (Hospitalization)
  Sender: FDA-Public Use
  Company Number: IN-VISTAPHARM, INC.-VER201710-000781

PATIENT
  Age: 23 Year
  Sex: Male

DRUGS (5)
  1. ESCITALOPRAM [Concomitant]
     Active Substance: ESCITALOPRAM OXALATE
     Indication: SEIZURE
  2. LACOSAMIDE. [Suspect]
     Active Substance: LACOSAMIDE
     Indication: PRODUCT USED FOR UNKNOWN INDICATION
  3. LACOSAMIDE. [Suspect]
     Active Substance: LACOSAMIDE
  4. VALPROIC ACID. [Suspect]
     Active Substance: VALPROIC ACID
     Indication: SEIZURE
  5. CARBAMAZEPINE. [Concomitant]
     Active Substance: CARBAMAZEPINE
     Indication: SEIZURE

REACTIONS (3)
  - Toxicity to various agents [Recovered/Resolved]
  - Drug interaction [Recovered/Resolved]
  - Hyperammonaemic encephalopathy [Recovered/Resolved]
